FAERS Safety Report 9061402 (Version 1)
Quarter: 2013Q1

REPORT INFORMATION
  Report Type: Spontaneous
  Country: BE (occurrence: BE)
  Receive Date: 20130204
  Receipt Date: 20130204
  Transmission Date: 20140127
  Serious: Yes (Death, Hospitalization, Other)
  Sender: FDA-Public Use
  Company Number: BE-JNJFOC-20130112058

PATIENT
  Age: 78 None
  Sex: Male

DRUGS (2)
  1. XARELTO [Suspect]
     Indication: CEREBROVASCULAR ACCIDENT PROPHYLAXIS
     Route: 048
     Dates: start: 201201, end: 20121204
  2. XARELTO [Suspect]
     Indication: ATRIAL FIBRILLATION
     Route: 048
     Dates: start: 201201, end: 20121204

REACTIONS (4)
  - Gastric ulcer haemorrhage [Fatal]
  - Shock haemorrhagic [Fatal]
  - Haematoma [Recovered/Resolved]
  - Fall [Recovered/Resolved]
